FAERS Safety Report 14239237 (Version 1)
Quarter: 2017Q4

REPORT INFORMATION
  Report Type: Report from Study
  Country: FR (occurrence: FR)
  Receive Date: 20171130
  Receipt Date: 20171130
  Transmission Date: 20180321
  Serious: Yes (Other)
  Sender: FDA-Public Use
  Company Number: FR-ASTRAZENECA-2017SF21043

PATIENT
  Age: 11904 Day
  Sex: Female
  Weight: 59 kg

DRUGS (3)
  1. AZD2281 [Suspect]
     Active Substance: OLAPARIB
     Indication: BREAST CANCER
     Route: 048
     Dates: start: 20171003
  2. DECAPEPTYL [Concomitant]
     Active Substance: TRIPTORELIN
     Indication: BREAST CANCER
     Route: 048
     Dates: start: 20170906
  3. EXEMESTANE. [Concomitant]
     Active Substance: EXEMESTANE
     Indication: BREAST CANCER
     Route: 048
     Dates: start: 20170913

REACTIONS (1)
  - Hypothyroidism [Recovering/Resolving]

NARRATIVE: CASE EVENT DATE: 20171017
